FAERS Safety Report 7282672-X (Version None)
Quarter: 2011Q1

REPORT INFORMATION
  Report Type: 
  Country: None (occurrence: None)
  Receive Date: 20110209
  Receipt Date: 20110201
  Transmission Date: 20110831
  Serious: Yes (Hospitalization, Other)
  Sender: FDA-Public Use
  Company Number: BE-JNJFOC-20110200537

PATIENT

DRUGS (5)
  1. DURAGESIC-100 [Suspect]
     Indication: ILL-DEFINED DISORDER
     Dosage: DURING 2 DAYS
     Route: 062
  2. TRANSTEC [Concomitant]
     Indication: ILL-DEFINED DISORDER
     Dosage: DURING 6 DAYS
     Route: 065
  3. TRANSTEC [Concomitant]
     Dosage: DURING 3 DAYS
     Route: 065
  4. CRESTOR [Concomitant]
     Dosage: FOR 5 AND HALF YEARS
     Route: 065
  5. DURAGESIC-100 [Suspect]
     Dosage: DURING 10 DAYS
     Route: 062

REACTIONS (3)
  - VOMITING [None]
  - HOSPITALISATION [None]
  - HAEMOPTYSIS [None]
